FAERS Safety Report 19419021 (Version 1)
Quarter: 2021Q2

REPORT INFORMATION
  Report Type: Spontaneous
  Country: US (occurrence: US)
  Receive Date: 20210615
  Receipt Date: 20210615
  Transmission Date: 20210717
  Serious: Yes (Other)
  Sender: FDA-Public Use
  Company Number: US-PFIZER INC-2021303573

PATIENT
  Age: 57 Year
  Sex: Male
  Weight: 65.76 kg

DRUGS (1)
  1. INLYTA [Suspect]
     Active Substance: AXITINIB
     Indication: RENAL CELL CARCINOMA
     Dosage: 5 MG, CYCLIC (TWO TIMES A DAY ON DAYS 1?21 OF EVERY 21 DAY CYCLE)
     Route: 048
     Dates: start: 202102

REACTIONS (4)
  - Hepatitis [Unknown]
  - Blood test abnormal [Unknown]
  - Dry skin [Unknown]
  - Erythema [Unknown]
